FAERS Safety Report 14867689 (Version 2)
Quarter: 2020Q3

REPORT INFORMATION
  Report Type: Spontaneous
  Country: ES (occurrence: ES)
  Receive Date: 20180508
  Receipt Date: 20200928
  Transmission Date: 20201102
  Serious: Yes (Death, Hospitalization, Other)
  Sender: FDA-Public Use
  Company Number: ES-AUROBINDO-AUR-APL-2018-024382

PATIENT
  Age: 62 Year
  Sex: Male

DRUGS (13)
  1. LORATADINA [Interacting]
     Active Substance: LORATADINE
     Indication: RHINITIS ALLERGIC
     Dosage: 10 MILLIGRAM, DAILY
     Route: 065
  2. VALPROIC ACID. [Interacting]
     Active Substance: VALPROIC ACID
     Indication: EPILEPSY
     Dosage: 1500 MILLIGRAM
     Route: 065
  3. LEVOTHYROXINE. [Concomitant]
     Active Substance: LEVOTHYROXINE
     Indication: HYPOTHYROIDISM
     Dosage: 150 MICROGRAM, DAILY
     Route: 065
  4. TIOTROPIUM [Concomitant]
     Active Substance: TIOTROPIUM
     Indication: CHRONIC OBSTRUCTIVE PULMONARY DISEASE
     Dosage: 2.5 MICROGRAM
     Route: 065
  5. QUETIAPINE 400MG [Interacting]
     Active Substance: QUETIAPINE
     Dosage: 3600 MG, QD
  6. HALOPERIDOL. [Interacting]
     Active Substance: HALOPERIDOL
     Indication: PSYCHOTIC DISORDER
     Dosage: 15 MILLIGRAM
     Route: 065
  7. VALPROIC ACID. [Interacting]
     Active Substance: VALPROIC ACID
     Indication: MANIA
     Dosage: 500 MILLIGRAM, 3 TIMES A DAY
     Route: 065
  8. QUETIAPINE 400MG [Interacting]
     Active Substance: QUETIAPINE
     Indication: DEPRESSION
     Dosage: 1200 MILLIGRAM (1?1?1?0)
     Route: 065
  9. QUETIAPINE 400MG [Suspect]
     Active Substance: QUETIAPINE
     Indication: SCHIZOPHRENIA
     Dosage: 400 MG, TID
     Route: 065
  10. CLONAZEPAM. [Interacting]
     Active Substance: CLONAZEPAM
     Indication: EPILEPSY
     Dosage: 0.5 MILLIGRAM
     Route: 065
  11. HALOPERIDOL. [Interacting]
     Active Substance: HALOPERIDOL
     Dosage: 5 MILLIGRAM, EVERY WEEK
  12. FLUTICASONE + SALMETEROL [Concomitant]
     Active Substance: FLUTICASONE FUROATE\SALMETEROL XINAFOATE
     Indication: ASTHMA
     Dosage: 1?0?1?0 2 INHALACIONES
     Route: 048
  13. METFORMINA [Concomitant]
     Active Substance: METFORMIN HYDROCHLORIDE
     Indication: TYPE 2 DIABETES MELLITUS
     Dosage: 1700 MILLIGRAM
     Route: 065

REACTIONS (11)
  - Cardiac failure [Fatal]
  - Loss of consciousness [Not Recovered/Not Resolved]
  - Pruritus [Unknown]
  - Hypothyroidism [Unknown]
  - Coma [Not Recovered/Not Resolved]
  - Ventricular fibrillation [Fatal]
  - Off label use [Fatal]
  - Prescribed overdose [Fatal]
  - Drug interaction [Fatal]
  - Hyperprolactinaemia [Unknown]
  - Type 2 diabetes mellitus [Unknown]
